FAERS Safety Report 13386431 (Version 1)
Quarter: 2017Q1

REPORT INFORMATION
  Report Type: Report from Study
  Country: None (occurrence: US)
  Receive Date: 20170330
  Receipt Date: 20170330
  Transmission Date: 20170429
  Serious: Yes (Other)
  Sender: FDA-Public Use
  Company Number: US-ABBVIE-17K-163-1922232-00

PATIENT
  Sex: Male

DRUGS (1)
  1. HUMIRA [Suspect]
     Active Substance: ADALIMUMAB
     Indication: RHEUMATOID ARTHRITIS
     Route: 058
     Dates: start: 2013, end: 201702

REACTIONS (8)
  - Bipolar disorder [Unknown]
  - Spinal operation [Unknown]
  - Vision blurred [Unknown]
  - Procedural complication [Unknown]
  - Gait disturbance [Unknown]
  - Haemorrhage [Unknown]
  - Mobility decreased [Unknown]
  - Pain in extremity [Unknown]
